FAERS Safety Report 5586834-9 (Version None)
Quarter: 2008Q1

REPORT INFORMATION
  Report Type: 
  Country: None (occurrence: None)
  Receive Date: 20080110
  Receipt Date: 20070926
  Transmission Date: 20080703
  Serious: Yes (Other)
  Sender: FDA-Public Use
  Company Number: US-BAYER-US-2007-022471

PATIENT
  Age: 40 Year
  Sex: Female
  Weight: 56 kg

DRUGS (3)
  1. YAZ [Suspect]
     Indication: ORAL CONTRACEPTION
     Route: 048
     Dates: start: 20070521, end: 20070612
  2. ADDERALL 10 [Concomitant]
     Indication: ATTENTION DEFICIT/HYPERACTIVITY DISORDER
     Dosage: UNIT DOSE: 10 MG
  3. TRAZODONE HCL [Concomitant]
     Indication: SLEEP DISORDER
     Dosage: UNIT DOSE: 50 MG

REACTIONS (3)
  - BLOOD POTASSIUM INCREASED [None]
  - DEHYDRATION [None]
  - LOSS OF CONSCIOUSNESS [None]
